FAERS Safety Report 25994233 (Version 1)
Quarter: 2025Q4

REPORT INFORMATION
  Report Type: Spontaneous
  Country: MY (occurrence: MY)
  Receive Date: 20251104
  Receipt Date: 20251104
  Transmission Date: 20260117
  Serious: Yes (Death)
  Sender: GENMAB
  Company Number: MY-ABBVIE-6501223

PATIENT
  Sex: Male

DRUGS (1)
  1. EPKINLY [Suspect]
     Active Substance: EPCORITAMAB-BYSP
     Indication: Diffuse large B-cell lymphoma
     Dosage: 48 MILLIGRAM (FORM STRENGTH- 48 MILLIGRAM)
     Route: 058

REACTIONS (1)
  - Death [Fatal]
